FAERS Safety Report 7382003-0 (Version None)
Quarter: 2011Q1

REPORT INFORMATION
  Report Type: 
  Country: None (occurrence: None)
  Receive Date: 20110329
  Receipt Date: 20110324
  Transmission Date: 20110831
  Serious: Yes (Hospitalization)
  Sender: FDA-Public Use
  Company Number: FR-PFIZER INC-2011065294

PATIENT
  Age: 81 Year
  Sex: Male

DRUGS (10)
  1. ORBENIN CAP [Concomitant]
     Indication: STAPHYLOCOCCAL SEPSIS
     Dosage: UNK
     Dates: start: 20101229
  2. RIFADIN [Concomitant]
     Indication: STAPHYLOCOCCAL SEPSIS
     Dosage: UNK
     Dates: start: 20101229
  3. TAHOR [Suspect]
     Dosage: DAILY
     Route: 048
     Dates: start: 20110104, end: 20110121
  4. PLAVIX [Suspect]
     Dosage: UNK
     Route: 048
     Dates: start: 20110104, end: 20110121
  5. LOVENOX [Concomitant]
     Dosage: UNK
     Dates: start: 20110118
  6. CARDENSIEL [Concomitant]
     Dosage: UNK
     Dates: start: 20110104
  7. COVERSYL [Suspect]
     Dosage: DAILY
     Route: 048
     Dates: start: 20110104, end: 20110121
  8. GENTAMICIN [Concomitant]
     Indication: STAPHYLOCOCCAL SEPSIS
     Dosage: UNK
     Dates: start: 20101229
  9. KARDEGIC [Concomitant]
     Dosage: UNK
     Route: 048
     Dates: start: 20110104
  10. NEXIUM [Concomitant]
     Dosage: UNK
     Dates: start: 20110104

REACTIONS (1)
  - ECZEMA [None]
